FAERS Safety Report 21210525 (Version 2)
Quarter: 2022Q3

REPORT INFORMATION
  Report Type: Report from Study
  Country: AR (occurrence: AR)
  Receive Date: 20220815
  Receipt Date: 20220906
  Transmission Date: 20221027
  Serious: Yes (Hospitalization)
  Sender: FDA-Public Use
  Company Number: AR-JNJFOC-20220821876

PATIENT
  Age: 31 Year
  Sex: Female
  Weight: 59 kg

DRUGS (1)
  1. VELETRI [Suspect]
     Active Substance: EPOPROSTENOL
     Indication: Pulmonary arterial hypertension
     Dosage: ADMINISTRATION ROUTE: INTRAVENOUS LINE IN CONTINUOUS PUMP
     Route: 042
     Dates: start: 20220608

REACTIONS (2)
  - Fluid retention [Unknown]
  - Blood disorder [Unknown]

NARRATIVE: CASE EVENT DATE: 20220801
